FAERS Safety Report 4289601-1 (Version None)
Quarter: 2004Q1

REPORT INFORMATION
  Report Type: 
  Country: None (occurrence: None)
  Receive Date: 20040126
  Receipt Date: 20030213
  Transmission Date: 20041129
  Serious: Yes (Death)
  Sender: FDA-Public Use
  Company Number: 327269

PATIENT
  Age: 79 Year
  Sex: Female

DRUGS (5)
  1. TORADOL [Suspect]
     Indication: DRUG USE FOR UNKNOWN INDICATION
     Dosage: 15 MG 1 PER 6 HOUR INTRAVENOUS
     Route: 042
     Dates: start: 20000413
  2. NA [Concomitant]
     Dosage: NA
  3. PREDNISONE [Concomitant]
  4. PREVACID [Concomitant]
  5. DEPO-MEDROL [Concomitant]

REACTIONS (1)
  - GASTROINTESTINAL HAEMORRHAGE [None]
